FAERS Safety Report 5836875-9 (Version None)
Quarter: 2008Q3

REPORT INFORMATION
  Report Type: 
  Country: None (occurrence: None)
  Receive Date: 20080807
  Receipt Date: 20080728
  Transmission Date: 20090109
  Serious: Yes (Death, Life-Threatening, Other)
  Sender: FDA-Public Use
  Company Number: GB-JNJFOC-20071107759

PATIENT
  Age: 66 Year
  Sex: Female
  Weight: 68 kg

DRUGS (8)
  1. REMICADE [Suspect]
     Indication: RHEUMATOID ARTHRITIS
     Dosage: 2/ 1WEEKS
     Route: 042
  2. METHOTREXATE [Concomitant]
     Indication: RHEUMATOID ARTHRITIS
     Route: 048
  3. PREDNISOLONE [Concomitant]
     Indication: RHEUMATOID ARTHRITIS
     Route: 048
  4. AMLODIPINE [Concomitant]
  5. ATENOLOL [Concomitant]
  6. CO-PROXAMOL [Concomitant]
  7. FOLIC ACID [Concomitant]
  8. INDOCIN [Concomitant]

REACTIONS (5)
  - GASTROINTESTINAL HAEMORRHAGE [None]
  - METASTASES TO HEART [None]
  - METASTASES TO LYMPH NODES [None]
  - OVARIAN CANCER [None]
  - PATHOLOGICAL FRACTURE [None]
